FAERS Safety Report 9453143 (Version 1)
Quarter: 2013Q3

REPORT INFORMATION
  Report Type: Spontaneous
  Country: US (occurrence: US)
  Receive Date: 20130812
  Receipt Date: 20130812
  Transmission Date: 20140515
  Serious: Yes (Hospitalization, Other)
  Sender: FDA-Public Use
  Company Number: PHHY2013US084682

PATIENT
  Age: 63 Year
  Sex: Female

DRUGS (12)
  1. GILENYA [Suspect]
     Indication: RELAPSING-REMITTING MULTIPLE SCLEROSIS
     Dosage: 0.5 MG, QD
     Route: 048
     Dates: start: 201103, end: 201204
  2. NORVASC [Concomitant]
     Dosage: 10 MG, UNK
     Dates: start: 20110824
  3. RESTASIS [Concomitant]
     Dosage: 7.5 MG, UNK
  4. ENABLEX [Concomitant]
     Dosage: 7.5 MG, UNK
  5. ARTHROTEC [Concomitant]
  6. VIBRA-TABS [Concomitant]
     Dosage: 100 MG, UNK
  7. PREMARIN [Concomitant]
     Dosage: 0.3 MG, UNK
  8. ARTIFICIAL TEARS [Concomitant]
     Dosage: 1 %, UNK
  9. CYANOCOBALAMIN [Concomitant]
     Dosage: 1000 UG, UNK
  10. FERROUS SULPHATE [Concomitant]
     Dosage: 325 MG, UNK
  11. CALCIUM + VITAMIN D [Concomitant]
     Dosage: 185 MG, UNK
  12. ZANAFLEX [Concomitant]
     Dosage: 1 MG, UNK

REACTIONS (22)
  - Renal cell carcinoma stage IV [Not Recovered/Not Resolved]
  - Back pain [Not Recovered/Not Resolved]
  - Hyperhidrosis [Unknown]
  - Pyrexia [Unknown]
  - Night sweats [Unknown]
  - Renal mass [Unknown]
  - Weight decreased [Unknown]
  - Metastases to bone [Not Recovered/Not Resolved]
  - Metastases to lung [Unknown]
  - Hypotension [Unknown]
  - Vitamin B12 increased [Unknown]
  - Mean cell haemoglobin decreased [Unknown]
  - Protein total decreased [Unknown]
  - Mean cell volume decreased [Unknown]
  - Eosinophil count increased [Unknown]
  - Red cell distribution width increased [Unknown]
  - Monocyte count increased [Unknown]
  - Blood glucose increased [Unknown]
  - Aspartate aminotransferase increased [Unknown]
  - Alanine aminotransferase increased [Unknown]
  - White blood cell count decreased [Unknown]
  - Lymphocyte count decreased [Unknown]
